FAERS Safety Report 8483055-7 (Version None)
Quarter: 2012Q2

REPORT INFORMATION
  Report Type: 
  Country: None (occurrence: None)
  Receive Date: 20120626
  Receipt Date: 20120614
  Transmission Date: 20120825
  Serious: Yes (Death, Hospitalization)
  Sender: FDA-Public Use
  Company Number: DSA_56323_2012

PATIENT
  Sex: Male

DRUGS (10)
  1. . [Concomitant]
  2. PANTOPRAZOLE [Suspect]
     Indication: GASTRODUODENAL ULCER
     Dosage: (DF ORAL)
     Route: 048
     Dates: start: 20120307
  3. CLARITHROMYCIN [Suspect]
     Indication: GASTRODUODENAL ULCER
     Dosage: (DF ORAL)
     Route: 048
     Dates: start: 20120307
  4. AMLODIPINE BESYLATE [Concomitant]
  5. FLAGYL [Suspect]
     Indication: GASTRODUODENAL ULCER
     Dosage: (400 MG,  ORAL), (DF INTRAVENOUS (NOT OTHERWISE SPECIFIED))
     Route: 042
     Dates: start: 20120307, end: 20120309
  6. FLAGYL [Suspect]
     Indication: GASTRODUODENAL ULCER
     Dosage: (400 MG,  ORAL), (DF INTRAVENOUS (NOT OTHERWISE SPECIFIED))
     Route: 042
     Dates: start: 20120309, end: 20120315
  7. . [Concomitant]
  8. AMOXICILLIN [Suspect]
     Indication: GASTRODUODENAL ULCER
     Dosage: (DF ORAL)
     Dates: start: 20120307
  9. IRBESARTAN [Concomitant]
  10. FORLAX /00754501/ [Concomitant]

REACTIONS (4)
  - PLEURAL EFFUSION [None]
  - LEUKOCYTOSIS [None]
  - BRAIN NATRIURETIC PEPTIDE INCREASED [None]
  - ORGANISING PNEUMONIA [None]
